FAERS Safety Report 10609469 (Version 4)
Quarter: 2015Q1

REPORT INFORMATION
  Report Type: Report from Study
  Country: US (occurrence: US)
  Receive Date: 20141126
  Receipt Date: 20150101
  Transmission Date: 20150720
  Serious: Yes (Hospitalization)
  Sender: FDA-Public Use
  Company Number: US-BIOGENIDEC-2014BI122926

PATIENT
  Age: 66 Year
  Sex: Female

DRUGS (5)
  1. TECFIDERA [Suspect]
     Active Substance: DIMETHYL FUMARATE
     Indication: MULTIPLE SCLEROSIS
     Dates: start: 2014
  2. TECFIDERA [Suspect]
     Active Substance: DIMETHYL FUMARATE
     Indication: MULTIPLE SCLEROSIS
     Route: 048
     Dates: start: 201411, end: 2014
  3. ASPIRIN. [Concomitant]
     Active Substance: ASPIRIN
     Indication: INTERVERTEBRAL DISC DEGENERATION
  4. TECFIDERA [Suspect]
     Active Substance: DIMETHYL FUMARATE
     Indication: MULTIPLE SCLEROSIS
     Route: 048
     Dates: start: 201406, end: 2014
  5. ASPIRIN. [Concomitant]
     Active Substance: ASPIRIN
     Indication: PAIN

REACTIONS (21)
  - Respiratory distress [Recovered/Resolved]
  - Fear [Recovered/Resolved]
  - Dry mouth [Not Recovered/Not Resolved]
  - Gastrooesophageal reflux disease [Unknown]
  - Nausea [Recovered/Resolved]
  - Gastric disorder [Not Recovered/Not Resolved]
  - Multiple sclerosis [Recovered/Resolved]
  - Gastrointestinal disorder [Recovered/Resolved]
  - Generalised tonic-clonic seizure [Recovered/Resolved]
  - Dehydration [Recovered/Resolved]
  - Petit mal epilepsy [Unknown]
  - Intentional product use issue [Recovered/Resolved]
  - Regurgitation [Recovered/Resolved]
  - Dyspepsia [Recovered/Resolved]
  - Vomiting [Recovered/Resolved]
  - Diarrhoea [Recovered/Resolved]
  - Blood sodium decreased [Recovered/Resolved]
  - Amnesia [Not Recovered/Not Resolved]
  - Body temperature decreased [Recovered/Resolved]
  - Arthritis [Not Recovered/Not Resolved]
  - Tongue injury [None]

NARRATIVE: CASE EVENT DATE: 2014
